FAERS Safety Report 7806820-5 (Version None)
Quarter: 2011Q4

REPORT INFORMATION
  Report Type: 
  Country: None (occurrence: None)
  Receive Date: 20111011
  Receipt Date: 20110929
  Transmission Date: 20120403
  Serious: Yes (Life-Threatening, Hospitalization)
  Sender: FDA-Public Use
  Company Number: IN-ELI_LILLY_AND_COMPANY-IN200909000743

PATIENT
  Sex: Female
  Weight: 40 kg

DRUGS (5)
  1. MORPHINE [Concomitant]
     Dates: start: 20090813
  2. VINFLUNINE [Suspect]
     Indication: BREAST CANCER METASTATIC
     Dosage: 320 MG/M2 (409MG) ON DAY 1 EVERY 3 WEEKS
     Route: 042
     Dates: start: 20090820
  3. DULCOLAX [Concomitant]
     Dates: start: 20090813
  4. GEMCITABINE HYDROCHLORIDE [Suspect]
     Indication: BREAST CANCER METASTATIC
     Dosage: 1000 MG/M2 (1280MG) ON DAY 1 AND DAY 8 EVERY 3 WEEKS
     Route: 042
     Dates: start: 20090820
  5. CREMAFFIN [Concomitant]
     Dates: start: 20090819, end: 20090825

REACTIONS (7)
  - TRANSAMINASES INCREASED [None]
  - LEUKOPENIA [None]
  - HYPONATRAEMIA [None]
  - FEBRILE NEUTROPENIA [None]
  - THROMBOCYTOPENIA [None]
  - HYPOCALCAEMIA [None]
  - HYPOKALAEMIA [None]
